FAERS Safety Report 5826503-0 (Version None)
Quarter: 2008Q3

REPORT INFORMATION
  Report Type: 
  Country: None (occurrence: None)
  Receive Date: 20080724
  Receipt Date: 20080709
  Transmission Date: 20090109
  Serious: Yes (Other)
  Sender: FDA-Public Use
  Company Number: SPV1-2008-01478

PATIENT
  Age: 60 Year
  Sex: Female
  Weight: 63 kg

DRUGS (7)
  1. VYVANSE [Suspect]
     Indication: ATTENTION DEFICIT/HYPERACTIVITY DISORDER
     Dosage: 30 MG, 1X/DAY:QD, ORAL
     Route: 048
     Dates: start: 20080501, end: 20080601
  2. LEVOTHYROXINE SODIUM [Concomitant]
  3. PROZAC /00724401/ (FLUOXETINE) [Concomitant]
  4. ESKALITH [Concomitant]
  5. VITAMINS NOS (VITAMINS NOS) [Concomitant]
  6. CALCIUM (CALCIUM) [Concomitant]
  7. ERGOCALCIFEROL [Concomitant]

REACTIONS (2)
  - HOMICIDAL IDEATION [None]
  - HOSTILITY [None]
